FAERS Safety Report 25521976 (Version 2)
Quarter: 2025Q3

REPORT INFORMATION
  Report Type: Spontaneous
  Country: JP (occurrence: JP)
  Receive Date: 20250706
  Receipt Date: 20250716
  Transmission Date: 20251020
  Serious: Yes (Hospitalization, Other)
  Sender: GLAXOSMITHKLINE
  Company Number: JP-GSKJP-JP2025071706AA

PATIENT
  Sex: Female

DRUGS (8)
  1. NUCALA [Suspect]
     Active Substance: MEPOLIZUMAB
     Indication: Eosinophilic granulomatosis with polyangiitis
     Dosage: 300 MG, Q4W
  2. CARVEDILOL [Suspect]
     Active Substance: CARVEDILOL
     Dosage: 5 MG, 1D
  3. ENALAPRIL [Suspect]
     Active Substance: ENALAPRIL
     Dosage: 2.5 MG, 1D
  4. AMITIZA [Suspect]
     Active Substance: LUBIPROSTONE
     Dosage: 24 ?G, BID
  5. PREDONINE [Suspect]
     Active Substance: PREDNISOLONE
     Dosage: 10 MG, 1D
  6. PREDONINE [Suspect]
     Active Substance: PREDNISOLONE
  7. VONOPRAZAN FUMARATE [Suspect]
     Active Substance: VONOPRAZAN FUMARATE
     Dosage: 10 MG, 1D
  8. METHYLCOBALAMIN [Suspect]
     Active Substance: METHYLCOBALAMIN
     Dosage: 1500 ?G, TID

REACTIONS (1)
  - Immune-mediated hepatic disorder [Recovering/Resolving]

NARRATIVE: CASE EVENT DATE: 20250521
